FAERS Safety Report 8051984-4 (Version None)
Quarter: 2012Q1

REPORT INFORMATION
  Report Type: 
  Country: None (occurrence: None)
  Receive Date: 20120118
  Receipt Date: 20120112
  Transmission Date: 20120608
  Serious: Yes (Other)
  Sender: FDA-Public Use
  Company Number: US-SANOFI-AVENTIS-2012SA002232

PATIENT
  Age: 71 Year
  Sex: Female

DRUGS (4)
  1. LANTUS [Suspect]
     Dosage: DOSE:24 UNIT(S)
     Route: 058
     Dates: start: 20070101
  2. SOLOSTAR [Suspect]
     Dates: start: 20070101
  3. LOVENOX [Concomitant]
  4. PLAVIX [Concomitant]

REACTIONS (6)
  - CRANIOCEREBRAL INJURY [None]
  - COLOSTOMY [None]
  - BLOOD GLUCOSE INCREASED [None]
  - BLOOD GLUCOSE DECREASED [None]
  - OVARIAN CANCER METASTATIC [None]
  - PULMONARY EMBOLISM [None]
